FAERS Safety Report 17228669 (Version 2)
Quarter: 2021Q4

REPORT INFORMATION
  Report Type: Spontaneous
  Country: CH (occurrence: CH)
  Receive Date: 20200103
  Receipt Date: 20211014
  Transmission Date: 20220303
  Serious: Yes (Death, Other)
  Sender: FDA-Public Use
  Company Number: None

PATIENT
  Age: 87 Year
  Sex: Female

DRUGS (22)
  1. LORAZEPAM [Suspect]
     Active Substance: LORAZEPAM
     Dosage: 1 MG, 1X/DAY
     Dates: start: 20190702, end: 20191220
  2. LORAZEPAM [Suspect]
     Active Substance: LORAZEPAM
     Dosage: AS NECESSARY
     Dates: start: 20190326
  3. AMLODIPINE BESYLATE [Suspect]
     Active Substance: AMLODIPINE BESYLATE
     Dosage: 5 MG, DAILY
     Dates: start: 20171010, end: 20191220
  4. TORSEMIDE [Suspect]
     Active Substance: TORSEMIDE
     Dosage: 5 MG, 2X/DAY
     Dates: start: 20190618, end: 20191219
  5. MEBEVERINE HYDROCHLORIDE [Suspect]
     Active Substance: MEBEVERINE HYDROCHLORIDE
     Dosage: 200 MG, 3X/DAY
     Dates: start: 20190212
  6. ALBUTEROL SULFATE\IPRATROPIUM BROMIDE [Suspect]
     Active Substance: ALBUTEROL SULFATE\IPRATROPIUM BROMIDE
     Dosage: UNK
     Dates: start: 20190723, end: 20191220
  7. IBUPROFEN [Suspect]
     Active Substance: IBUPROFEN
     Dosage: AS NECESSARY
     Dates: start: 20171003, end: 20191220
  8. XARELTO [Suspect]
     Active Substance: RIVAROXABAN
     Dosage: 10 MG, 1X/DAY
     Dates: start: 20180417
  9. CLOMETHIAZOLE [Suspect]
     Active Substance: CLOMETHIAZOLE
     Dosage: AS NECESSARY
     Dates: start: 20181218, end: 20191220
  10. ESOMEPRAZOLE MAGNESIUM [Suspect]
     Active Substance: ESOMEPRAZOLE MAGNESIUM
     Dosage: 20 MG, 1X/DAY
     Route: 048
     Dates: start: 20190206, end: 20191219
  11. DAFALGAN [Suspect]
     Active Substance: ACETAMINOPHEN
     Dosage: AS NECESSARY
     Dates: start: 20190627
  12. BEXIN [Suspect]
     Active Substance: DEXTROMETHORPHAN HYDROBROMIDE
     Dosage: UNK, AS NEEDED
     Dates: start: 20190723, end: 20191220
  13. METOPROLOL TARTRATE [Suspect]
     Active Substance: METOPROLOL TARTRATE
     Dosage: 50 MG, 1X/DAY
     Dates: start: 20180321
  14. FLATULEX [SIMETICONE] [Concomitant]
     Dosage: UNK
     Dates: start: 201909, end: 201910
  15. ADALAT [Concomitant]
     Active Substance: NIFEDIPINE
     Indication: Hypertensive crisis
     Dosage: UNK
     Dates: start: 2019, end: 2019
  16. CALCIUM CARBONATE\SODIUM ALGINATE\SODIUM BICARBONATE [Concomitant]
     Active Substance: CALCIUM CARBONATE\SODIUM ALGINATE\SODIUM BICARBONATE
     Dosage: UNK
     Dates: start: 20190322
  17. CHOLECALCIFEROL [Concomitant]
     Active Substance: CHOLECALCIFEROL
     Dosage: UNK
     Dates: start: 20180321
  18. SODIUM CHLORIDE [Concomitant]
     Active Substance: SODIUM CHLORIDE
     Dosage: UNK
     Dates: start: 201804
  19. ANTIDRY LOTION [Concomitant]
     Dosage: UNK
     Dates: start: 20170117
  20. CLOBEX [CLOBETASOL PROPIONATE] [Concomitant]
     Dosage: UNK
  21. DER-MED [Concomitant]
     Dosage: UNK
     Dates: start: 20161210
  22. TRANSIPEG [MACROGOL 3350;POTASSIUM CHLORIDE;SODIUM BICARBONATE;SODIUM [Concomitant]
     Dosage: AS NECESSARY
     Dates: start: 20190326

REACTIONS (4)
  - General physical health deterioration [Fatal]
  - Dysphagia [Fatal]
  - Altered state of consciousness [Fatal]
  - Dermatitis bullous [Recovered/Resolved]

NARRATIVE: CASE EVENT DATE: 20190901
